FAERS Safety Report 13236880 (Version 2)
Quarter: 2017Q1

REPORT INFORMATION
  Report Type: Spontaneous
  Country: US (occurrence: US)
  Receive Date: 20170216
  Receipt Date: 20170310
  Transmission Date: 20170428
  Serious: Yes (Hospitalization)
  Sender: FDA-Public Use
  Company Number: US-ENDO PHARMACEUTICALS INC-2017-000357

PATIENT
  Age: 57 Year
  Sex: Male
  Weight: 120.1 kg

DRUGS (1)
  1. SUMAVEL DOSEPRO [Suspect]
     Active Substance: SUMATRIPTAN SUCCINATE
     Indication: MIGRAINE
     Dosage: 6 MG, INTO SHOULDER AT ONSET OF MIGRAINE
     Route: 065
     Dates: start: 2011

REACTIONS (5)
  - Injection site haemorrhage [Recovered/Resolved]
  - Device malfunction [None]
  - Atrial fibrillation [Unknown]
  - Injection site pain [Recovered/Resolved]
  - Drug administered at inappropriate site [Unknown]

NARRATIVE: CASE EVENT DATE: 201612
